FAERS Safety Report 5132053-X (Version None)
Quarter: 2006Q4

REPORT INFORMATION
  Report Type: 
  Country: None (occurrence: None)
  Receive Date: 20061017
  Receipt Date: 20061004
  Transmission Date: 20070319
  Serious: Yes (Other)
  Sender: FDA-Public Use
  Company Number: 2006123134

PATIENT
  Sex: Female
  Weight: 72.5755 kg

DRUGS (3)
  1. NEURONTIN [Suspect]
     Indication: NERVE COMPRESSION
     Dosage: 2700 MG (900 MG, 3 IN 1 D)
  2. TOPAMAX [Concomitant]
  3. ELAVIL [Concomitant]

REACTIONS (8)
  - COAGULATION TIME PROLONGED [None]
  - COAGULOPATHY [None]
  - CONDITION AGGRAVATED [None]
  - DRUG DOSE OMISSION [None]
  - DRY SKIN [None]
  - ECZEMA [None]
  - PAIN [None]
  - TOOTH DISORDER [None]
